FAERS Safety Report 10548539 (Version 1)
Quarter: 2014Q4

REPORT INFORMATION
  Report Type: Spontaneous
  Country: US (occurrence: None)
  Receive Date: 20141015
  Receipt Date: 20141015
  Transmission Date: 20150529
  Serious: Yes (Hospitalization)
  Sender: FDA-Public Use
  Company Number: 2014US003675

PATIENT
  Age: 35 Year
  Sex: Female

DRUGS (5)
  1. XARELTO [Concomitant]
     Active Substance: RIVAROXABAN
  2. LEVAQUIN [Concomitant]
     Active Substance: LEVOFLOXACIN
  3. ACYCLOVIR (ACYCLOVIR) [Concomitant]
     Active Substance: ACYCLOVIR
  4. ICLUSIG [Suspect]
     Active Substance: PONATINIB
     Indication: ACUTE LYMPHOCYTIC LEUKAEMIA
     Route: 048
  5. AUGMENTIN (AMOXICILLIN TRIHYDRATE,CLAVULANATE POTASSIUM) [Concomitant]

REACTIONS (1)
  - Hospitalisation [None]
